FAERS Safety Report 9649114 (Version 1)
Quarter: 2013Q4

REPORT INFORMATION
  Report Type: Spontaneous
  Country: JP (occurrence: JP)
  Receive Date: 20131028
  Receipt Date: 20131028
  Transmission Date: 20140711
  Serious: Yes (Life-Threatening, Hospitalization, Other)
  Sender: FDA-Public Use
  Company Number: JP-PFIZER INC-2013303336

PATIENT
  Age: 27 Year
  Sex: Female

DRUGS (2)
  1. PACLITAXEL [Suspect]
     Indication: BREAST CANCER STAGE IV
     Dosage: 90 MG/M2, CYCLIC (DAYS 1, 8, AND 15)
  2. BEVACIZUMAB [Suspect]
     Indication: BREAST CANCER STAGE IV
     Dosage: 10 MG/M2, CYCLIC (DAYS 1 AND 15)

REACTIONS (2)
  - Haemorrhage [Unknown]
  - Tumour necrosis [Unknown]
